FAERS Safety Report 18229380 (Version 1)
Quarter: 2020Q3

REPORT INFORMATION
  Report Type: Spontaneous
  Country: US (occurrence: US)
  Receive Date: 20200903
  Receipt Date: 20200903
  Transmission Date: 20201103
  Serious: No
  Sender: FDA-Public Use
  Company Number: US-TEVA-2020-US-1824178

PATIENT
  Age: 66 Year
  Sex: Female
  Weight: 63.5 kg

DRUGS (1)
  1. MIMVEY [Suspect]
     Active Substance: ESTRADIOL\NORETHINDRONE ACETATE
     Indication: MENOPAUSE
     Dosage: 1MG/0.5MG
     Route: 065

REACTIONS (1)
  - Drug ineffective [Unknown]
